FAERS Safety Report 5929446-7 (Version None)
Quarter: 2008Q3

REPORT INFORMATION
  Report Type: 
  Country: None (occurrence: None)
  Receive Date: 20080924
  Receipt Date: 20080722
  Transmission Date: 20090109
  Serious: Yes (Hospitalization)
  Sender: FDA-Public Use
  Company Number: A03200802942

PATIENT
  Age: 53 Year
  Sex: Female
  Weight: 44.4525 kg

DRUGS (5)
  1. AMBIEN CR [Suspect]
     Indication: INSOMNIA
     Dosage: 1 DF HS - ORAL
     Route: 048
     Dates: start: 20070101, end: 20080601
  2. AMBIEN [Suspect]
     Indication: INSOMNIA
     Dosage: 1 DF HS - ORAL
     Route: 048
     Dates: start: 20040101, end: 20070101
  3. VALPROATE SODIUM [Concomitant]
  4. VENLAFAXINE HYDROCHLORIDE [Concomitant]
  5. INFLIXIMAB [Concomitant]

REACTIONS (19)
  - ABNORMAL BEHAVIOUR [None]
  - AMNESIA [None]
  - APHASIA [None]
  - DIPLOPIA [None]
  - DISORIENTATION [None]
  - DIZZINESS [None]
  - EYE INJURY [None]
  - FALL [None]
  - FATIGUE [None]
  - GAIT DISTURBANCE [None]
  - HYPOAESTHESIA [None]
  - LOSS OF CONSCIOUSNESS [None]
  - METAMORPHOPSIA [None]
  - MOBILITY DECREASED [None]
  - SLEEP SEX [None]
  - SLEEP TALKING [None]
  - SOMNAMBULISM [None]
  - STARING [None]
  - UNRESPONSIVE TO STIMULI [None]
